FAERS Safety Report 6059099-1 (Version None)
Quarter: 2009Q1

REPORT INFORMATION
  Report Type: 
  Country: None (occurrence: None)
  Receive Date: 20090128
  Receipt Date: 20090128
  Transmission Date: 20090719
  Serious: Yes (Other)
  Sender: FDA-Public Use
  Company Number: None

PATIENT

DRUGS (3)
  1. HEPARIN [Suspect]
     Dates: start: 20090101, end: 20090101
  2. HEPARIN [Suspect]
  3. HEPARIN [Suspect]

REACTIONS (2)
  - LYME DISEASE [None]
  - PRODUCT QUALITY ISSUE [None]
